FAERS Safety Report 8110669-6 (Version None)
Quarter: 2012Q1

REPORT INFORMATION
  Report Type: 
  Country: None (occurrence: None)
  Receive Date: 20120201
  Receipt Date: 20120201
  Transmission Date: 20120608
  Serious: Yes (Hospitalization)
  Sender: FDA-Public Use
  Company Number: None

PATIENT
  Sex: Male
  Weight: 69.03 kg

DRUGS (2)
  1. TAXOL [Suspect]
     Dosage: 376 MG
  2. CARBOPLATIN [Suspect]
     Dosage: 541.2 MG

REACTIONS (3)
  - PLEURAL EFFUSION [None]
  - CHRONIC OBSTRUCTIVE PULMONARY DISEASE [None]
  - CONDITION AGGRAVATED [None]
